FAERS Safety Report 16677596 (Version 1)
Quarter: 2019Q3

REPORT INFORMATION
  Report Type: Spontaneous
  Country: CA (occurrence: CA)
  Receive Date: 20190807
  Receipt Date: 20190807
  Transmission Date: 20191004
  Serious: Yes (Other)
  Sender: FDA-Public Use
  Company Number: CA-PFIZER INC-2019331838

PATIENT
  Age: 65 Year
  Sex: Female

DRUGS (1)
  1. ESTRING [Suspect]
     Active Substance: ESTRADIOL
     Indication: ATROPHIC VULVOVAGINITIS
     Dosage: 1 DF, EVERY 3 MONTHS
     Route: 067

REACTIONS (5)
  - Vaginal discharge [Recovered/Resolved]
  - Product label confusion [Recovered/Resolved]
  - Haemorrhage [Recovered/Resolved]
  - Product administration error [Recovered/Resolved]
  - Urinary incontinence [Recovered/Resolved]
